FAERS Safety Report 10252592 (Version 1)
Quarter: 2014Q2

REPORT INFORMATION
  Report Type: Spontaneous
  Country: DE (occurrence: DE)
  Receive Date: 20140623
  Receipt Date: 20140623
  Transmission Date: 20141212
  Serious: Yes (Death, Hospitalization, Other)
  Sender: FDA-Public Use
  Company Number: DE-BAYER-2014-087886

PATIENT
  Age: 79 Year
  Sex: Female

DRUGS (8)
  1. ACETYLSALICYLIC ACID({=100 MG) [Suspect]
     Indication: ATRIAL FIBRILLATION
     Dosage: 100 MG, DAILY
     Dates: start: 20120926
  2. MYCOPHENOLATE MOFETIL [Concomitant]
  3. CYCLOSPORINE [Concomitant]
  4. CANDESARTAN [Concomitant]
  5. TORASEMID [Concomitant]
  6. METOPROLOL [Concomitant]
  7. AMLODIPINE [Concomitant]
  8. LAMOTRIGINE [Concomitant]

REACTIONS (4)
  - Complications of transplanted kidney [Fatal]
  - Renal transplant failure [Fatal]
  - Anuria [Fatal]
  - Status epilepticus [Unknown]
